FAERS Safety Report 25687551 (Version 2)
Quarter: 2025Q3

REPORT INFORMATION
  Report Type: Report from Study
  Country: AU (occurrence: AU)
  Receive Date: 20250817
  Receipt Date: 20250926
  Transmission Date: 20251021
  Serious: Yes (Hospitalization, Other)
  Sender: UCB
  Company Number: AU-UCBSA-2025049696

PATIENT
  Sex: Male
  Weight: 69 kg

DRUGS (7)
  1. FINTEPLA [Suspect]
     Active Substance: FENFLURAMINE
     Indication: Lennox-Gastaut syndrome
     Dosage: 6 MILLILITER, 2X/DAY (BID)
     Route: 048
     Dates: start: 2025, end: 2025
  2. CLOBAZAM [Concomitant]
     Active Substance: CLOBAZAM
     Indication: Seizure
     Dates: start: 201505
  3. LEVETIRACETAM [Concomitant]
     Active Substance: LEVETIRACETAM
     Indication: Product used for unknown indication
     Dates: start: 201503
  4. PERAMPANEL [Concomitant]
     Active Substance: PERAMPANEL
     Indication: Product used for unknown indication
     Dosage: 12 MILLIGRAM, ONCE DAILY (QD)
     Dates: start: 201903
  5. ETHOSUXIMIDE [Concomitant]
     Active Substance: ETHOSUXIMIDE
     Indication: Product used for unknown indication
     Dosage: 7 MILLILITER, 2X/DAY (BID)
     Dates: start: 201508
  6. LAMOTRIGINE [Concomitant]
     Active Substance: LAMOTRIGINE
     Indication: Product used for unknown indication
     Dosage: 150 MILLIGRAM, 2X/DAY (BID)
     Dates: start: 202503
  7. RISPERIDONE [Concomitant]
     Active Substance: RISPERIDONE
     Indication: Product used for unknown indication
     Dosage: 0.25 MILLIGRAM, 2X/DAY (BID)

REACTIONS (12)
  - Brain operation [Recovered/Resolved]
  - Atonic seizures [Recovered/Resolved]
  - Apallic syndrome [Recovered/Resolved]
  - Urinary retention [Recovered/Resolved]
  - Decreased appetite [Recovered/Resolved]
  - Weight decreased [Recovered/Resolved]
  - Dysuria [Recovered/Resolved]
  - Somnolence [Recovered/Resolved]
  - Slow response to stimuli [Recovered/Resolved]
  - Dysarthria [Recovered/Resolved]
  - Drooling [Recovered/Resolved]
  - Eye disorder [Recovered/Resolved]

NARRATIVE: CASE EVENT DATE: 20250101
